FAERS Safety Report 5903414-3 (Version None)
Quarter: 2008Q3

REPORT INFORMATION
  Report Type: 
  Country: None (occurrence: None)
  Receive Date: 20080926
  Receipt Date: 20080922
  Transmission Date: 20090109
  Serious: Yes (Other)
  Sender: FDA-Public Use
  Company Number: 2008SP018737

PATIENT
  Age: 41 Year
  Sex: Female
  Weight: 102.0593 kg

DRUGS (7)
  1. MIRALAX [Suspect]
     Indication: BOWEL MOVEMENT IRREGULARITY
     Dosage: BID; PO
     Route: 048
     Dates: start: 20080904, end: 20080906
  2. GLUCOPHAGE [Concomitant]
  3. NOVOLOG [Concomitant]
  4. ZOCOR [Concomitant]
  5. BENAZEPRIL HYDROCHLORIDE [Concomitant]
  6. DILTIAZEM HCL [Concomitant]
  7. LANTUS [Concomitant]

REACTIONS (1)
  - RECTAL HAEMORRHAGE [None]
